FAERS Safety Report 5511341-9 (Version None)
Quarter: 2007Q4

REPORT INFORMATION
  Report Type: 
  Country: None (occurrence: None)
  Receive Date: 20071109
  Receipt Date: 20071008
  Transmission Date: 20080405
  Serious: No
  Sender: FDA-Public Use
  Company Number: A0678441A

PATIENT
  Age: 64 Year
  Sex: Male
  Weight: 80 kg

DRUGS (2)
  1. ALTABAX [Suspect]
     Indication: BLISTER
     Route: 061
  2. NO CONCURRENT MEDICATION [Concomitant]

REACTIONS (2)
  - APPLICATION SITE IRRITATION [None]
  - PAIN [None]
